FAERS Safety Report 15483202 (Version 2)
Quarter: 2018Q4

REPORT INFORMATION
  Report Type: Other
  Country: PL (occurrence: PL)
  Receive Date: 20181010
  Receipt Date: 20181017
  Transmission Date: 20190205
  Serious: Yes (Death, Hospitalization, Other)
  Sender: FDA-Public Use
  Company Number: PL-ASPEN-GLO2018PL009981

PATIENT
  Age: 79 Year
  Sex: Male

DRUGS (2)
  1. CHLORAMBUCIL [Suspect]
     Active Substance: CHLORAMBUCIL
     Indication: CHRONIC LYMPHOCYTIC LEUKAEMIA
     Route: 065
  2. RITUXIMAB. [Suspect]
     Active Substance: RITUXIMAB
     Indication: CHRONIC LYMPHOCYTIC LEUKAEMIA
     Route: 065

REACTIONS (5)
  - Clostridium difficile infection [Fatal]
  - Chronic lymphocytic leukaemia [Fatal]
  - Anaphylactic reaction [Recovering/Resolving]
  - Malignant neoplasm progression [Fatal]
  - Pseudomembranous colitis [Fatal]
